FAERS Safety Report 5933235-7 (Version None)
Quarter: 2008Q4

REPORT INFORMATION
  Report Type: 
  Country: None (occurrence: None)
  Receive Date: 20081028
  Receipt Date: 20081016
  Transmission Date: 20090506
  Serious: Yes (Hospitalization, Other)
  Sender: FDA-Public Use
  Company Number: JP-PFIZER INC-2008081812

PATIENT
  Sex: Female

DRUGS (6)
  1. CHAMPIX [Suspect]
     Indication: SMOKING CESSATION THERAPY
     Dosage: DAILY DOSE:2MG
     Route: 048
     Dates: start: 20080618, end: 20080907
  2. VASOLAN [Concomitant]
     Route: 048
     Dates: start: 20080501
  3. PREDNISOLONE [Concomitant]
     Route: 048
     Dates: start: 20080501
  4. ZANTAC [Concomitant]
     Route: 048
     Dates: start: 20080501
  5. CYANOCOBALAMIN [Concomitant]
     Route: 048
     Dates: start: 20080501
  6. LOXONIN [Concomitant]
     Route: 048
     Dates: start: 20080501

REACTIONS (7)
  - ALTERED STATE OF CONSCIOUSNESS [None]
  - FATIGUE [None]
  - FEELING ABNORMAL [None]
  - HEAD DISCOMFORT [None]
  - HYPOAESTHESIA [None]
  - MENTAL IMPAIRMENT [None]
  - SOMNOLENCE [None]
